FAERS Safety Report 5401786-X (Version None)
Quarter: 2007Q3

REPORT INFORMATION
  Report Type: 
  Country: None (occurrence: None)
  Receive Date: 20070731
  Receipt Date: 20070719
  Transmission Date: 20080115
  Serious: Yes (Hospitalization)
  Sender: FDA-Public Use
  Company Number: PFIZER INC-2007060972

PATIENT
  Sex: Male
  Weight: 58 kg

DRUGS (2)
  1. SU-011,248 [Suspect]
     Indication: METASTATIC RENAL CELL CARCINOMA
     Route: 048
     Dates: start: 20070507, end: 20070604
  2. SU-011,248 [Suspect]
     Route: 048
     Dates: start: 20070621, end: 20070718

REACTIONS (2)
  - EYE INFECTION [None]
  - SCROTAL ULCER [None]
